FAERS Safety Report 12010308 (Version 1)
Quarter: 2016Q1

REPORT INFORMATION
  Report Type: Spontaneous
  Country: SI (occurrence: SI)
  Receive Date: 20160205
  Receipt Date: 20160205
  Transmission Date: 20160526
  Serious: Yes (Other)
  Sender: FDA-Public Use
  Company Number: SI-PFIZER INC-2016061725

PATIENT
  Age: 84 Year
  Sex: Female

DRUGS (6)
  1. SANVAL [Concomitant]
     Active Substance: ZOLPIDEM TARTRATE
     Dosage: 5 MG, 1X/DAY AT EVENING
  2. ENAP /00574902/ [Concomitant]
     Dosage: 5 MG, 1X/DAY IN MORNING
  3. ALDACTONE [Concomitant]
     Active Substance: SPIRONOLACTONE
     Dosage: 25 MG, 1X/DAY IN MORNING
  4. CALCIUM CARBONATE. [Concomitant]
     Active Substance: CALCIUM CARBONATE
     Dosage: 1 G, 1X1 TBL
  5. MEDROL [Suspect]
     Active Substance: METHYLPREDNISOLONE
     Indication: RHEUMATOID ARTHRITIS
     Dosage: 4 MG, EVERY SECOND DAY
     Route: 048
     Dates: start: 20060102, end: 20160119
  6. ALPHA D3 [Concomitant]
     Dosage: 0.5 UG, 1X1 CAP

REACTIONS (2)
  - Ecchymosis [Unknown]
  - Skin haemorrhage [Unknown]

NARRATIVE: CASE EVENT DATE: 20160119
